FAERS Safety Report 24357718 (Version 5)
Quarter: 2024Q4

REPORT INFORMATION
  Report Type: Report from Study
  Country: FR (occurrence: FR)
  Receive Date: 20240924
  Receipt Date: 20241126
  Transmission Date: 20250115
  Serious: Yes (Hospitalization, Other)
  Sender: TAKEDA
  Company Number: FR-TAKEDA-2024TUS093441

PATIENT
  Age: 36 Year
  Sex: Female

DRUGS (9)
  1. TEDUGLUTIDE [Suspect]
     Active Substance: TEDUGLUTIDE
     Indication: Short-bowel syndrome
     Dosage: 2.6 MILLIGRAM, QD
     Dates: start: 20180217, end: 20180607
  2. TEDUGLUTIDE [Suspect]
     Active Substance: TEDUGLUTIDE
     Dosage: 2.9 MILLIGRAM, QD
     Dates: start: 20180608, end: 20181125
  3. TEDUGLUTIDE [Suspect]
     Active Substance: TEDUGLUTIDE
     Dosage: 2.8 MILLIGRAM, QD
     Dates: start: 20181126, end: 20190614
  4. TEDUGLUTIDE [Suspect]
     Active Substance: TEDUGLUTIDE
     Dosage: 2.6 MILLIGRAM, QD
     Dates: start: 20190615, end: 20191001
  5. TEDUGLUTIDE [Suspect]
     Active Substance: TEDUGLUTIDE
     Dosage: 2.8 MILLIGRAM, QD
     Dates: start: 20221208, end: 20240324
  6. TEDUGLUTIDE [Suspect]
     Active Substance: TEDUGLUTIDE
     Dosage: 2.6 MILLIGRAM, QD
     Dates: start: 20240325
  7. VITAMIN A [Concomitant]
     Active Substance: VITAMIN A
     Indication: Hypovitaminosis
     Dosage: 100000 INTERNATIONAL UNIT, QD
     Dates: start: 20230404
  8. ASCORBIC ACID [Concomitant]
     Active Substance: ASCORBIC ACID
     Indication: Vitamin C deficiency
     Dosage: 1 GRAM, QD
     Dates: start: 20230418
  9. COPPER GLUCONATE [Concomitant]
     Active Substance: COPPER GLUCONATE
     Indication: Prophylaxis
     Dosage: 0.3 MILLIGRAM, 1/WEEK
     Dates: start: 20230404

REACTIONS (2)
  - Vascular device infection [Recovered/Resolved]
  - Device related infection [Recovered/Resolved]

NARRATIVE: CASE EVENT DATE: 20240916
